FAERS Safety Report 5824066-7 (Version None)
Quarter: 2008Q3

REPORT INFORMATION
  Report Type: 
  Country: None (occurrence: None)
  Receive Date: 20080722
  Receipt Date: 20080708
  Transmission Date: 20090109
  Serious: Yes (Other)
  Sender: FDA-Public Use
  Company Number: DSA_32109_2008

PATIENT
  Age: 32 Year
  Sex: Female

DRUGS (1)
  1. ENALAPRIL MALEATE [Suspect]
     Indication: MALIGNANT HYPERTENSION
     Dosage: (1.25 MG GIVEN I.V. OVER 5 MINUTES INTRAVENOUS, (1.25 MG GIVEN I.V. OVER 5 MINUTES INTRAVENOUS
     Route: 042

REACTIONS (1)
  - PAROTITIS [None]
